FAERS Safety Report 6408647-8 (Version None)
Quarter: 2009Q4

REPORT INFORMATION
  Report Type: 
  Country: None (occurrence: None)
  Receive Date: 20091019
  Receipt Date: 20091005
  Transmission Date: 20100525
  Serious: Yes (Other)
  Sender: FDA-Public Use
  Company Number: AUR-APL-2009-00819

PATIENT
  Age: 53 Year
  Sex: Male

DRUGS (10)
  1. DIDANOSINE [Suspect]
     Indication: HIV INFECTION
  2. ZIDOVUDINE [Suspect]
     Indication: HIV INFECTION
  3. LAMIVUDINE [Suspect]
     Indication: HIV INFECTION
  4. NELFINAVIR MESYLATE [Suspect]
     Indication: HIV INFECTION
  5. NEVIRAPINE [Suspect]
     Indication: HIV INFECTION
  6. SAQUINAVIR [Suspect]
     Indication: HIV INFECTION
  7. ATAZANAVIR [Suspect]
     Indication: HIV INFECTION
  8. EFAVIRENZ [Suspect]
     Indication: HIV INFECTION
  9. EMTRICITABINE [Suspect]
     Indication: HIV INFECTION
  10. TENOFOVIR [Suspect]
     Indication: HIV INFECTION

REACTIONS (3)
  - GAIT DISTURBANCE [None]
  - PARKINSONISM [None]
  - RAPID EYE MOVEMENTS SLEEP ABNORMAL [None]
